FAERS Safety Report 5096202-4 (Version None)
Quarter: 2006Q3

REPORT INFORMATION
  Report Type: 
  Country: None (occurrence: None)
  Receive Date: 20060905
  Receipt Date: 20060821
  Transmission Date: 20061208
  Serious: Yes (Hospitalization, Congenital Anomaly)
  Sender: FDA-Public Use
  Company Number: PHBS2006AT12698

PATIENT
  Sex: Female

DRUGS (7)
  1. CYCLOSPORINE [Suspect]
     Route: 064
  2. THIOGUANINE [Concomitant]
     Route: 064
  3. MESALAMINE [Concomitant]
     Route: 064
  4. SERTRALINE [Concomitant]
     Route: 064
  5. STEROIDS NOS [Concomitant]
     Route: 064
  6. PREDNISOLONE [Concomitant]
     Route: 064
  7. CYCLOSPORINE [Suspect]
     Route: 064

REACTIONS (8)
  - ANAEMIA [None]
  - ATRIAL SEPTAL DEFECT [None]
  - DRUG EXPOSURE DURING PREGNANCY [None]
  - HAEMANGIOMA CONGENITAL [None]
  - NECROTISING COLITIS [None]
  - NEONATAL RESPIRATORY DISTRESS SYNDROME [None]
  - PULMONARY ARTERY STENOSIS CONGENITAL [None]
  - SEPSIS [None]
